FAERS Safety Report 23626427 (Version 1)
Quarter: 2024Q1

REPORT INFORMATION
  Report Type: Spontaneous
  Country: JP (occurrence: JP)
  Receive Date: 20240313
  Receipt Date: 20240313
  Transmission Date: 20240410
  Serious: Yes (Other)
  Sender: FDA-Public Use
  Company Number: JP-ASTELLAS-2024JP001699

PATIENT
  Age: 80 Year
  Sex: Male

DRUGS (11)
  1. ZOLPIDEM TARTRATE [Suspect]
     Active Substance: ZOLPIDEM TARTRATE
     Indication: Middle insomnia
     Dosage: UNK, UNK, UNKNOWN FREQ.
     Route: 048
  2. ZOLPIDEM TARTRATE [Suspect]
     Active Substance: ZOLPIDEM TARTRATE
     Dosage: 2.5 MG, QOD
     Route: 048
  3. ZOLPIDEM TARTRATE [Suspect]
     Active Substance: ZOLPIDEM TARTRATE
     Dosage: 2.5 MG (UNKNOWN FREQ., ONLY IN FALLING ASLEEP)
     Route: 048
  4. ZOLPIDEM TARTRATE [Suspect]
     Active Substance: ZOLPIDEM TARTRATE
     Dosage: 2.5 MG (UNKNOWN FREQ. IN FALLING ASLEEP AND ON AWAKENING IN THE MIDDLE OF SLEEP)
     Route: 048
  5. ZOLPIDEM TARTRATE [Suspect]
     Active Substance: ZOLPIDEM TARTRATE
     Dosage: ABOUT 70% OF 5MG, UNKNOWN FREQ.
     Route: 048
     Dates: start: 20240303
  6. HARNAL [Concomitant]
     Active Substance: TAMSULOSIN HYDROCHLORIDE
     Indication: Product used for unknown indication
     Dosage: UNK
     Route: 048
  7. DAYVIGO [Concomitant]
     Active Substance: LEMBOREXANT
     Indication: Product used for unknown indication
     Dosage: UNK
     Route: 065
  8. BELSOMRA [Concomitant]
     Active Substance: SUVOREXANT
     Indication: Product used for unknown indication
     Dosage: UNK
     Route: 065
  9. SILODOSIN [Concomitant]
     Active Substance: SILODOSIN
     Dosage: UNK
     Route: 065
  10. VESICARE [Concomitant]
     Active Substance: SOLIFENACIN SUCCINATE
     Dosage: UNK
     Route: 065
  11. IMIDAFENACIN [Concomitant]
     Active Substance: IMIDAFENACIN
     Dosage: UNK
     Route: 065

REACTIONS (9)
  - Apnoea [Unknown]
  - Gait deviation [Unknown]
  - Dizziness [Unknown]
  - Pollakiuria [Unknown]
  - Sleep deficit [Unknown]
  - Middle insomnia [Unknown]
  - Polyuria [Unknown]
  - Insomnia [Unknown]
  - Wrong technique in product usage process [Unknown]

NARRATIVE: CASE EVENT DATE: 20240303
